FAERS Safety Report 4301284-0 (Version None)
Quarter: 2004Q1

REPORT INFORMATION
  Report Type: 
  Country: None (occurrence: None)
  Receive Date: 20040220
  Receipt Date: 20040220
  Transmission Date: 20041129
  Serious: Yes (Other)
  Sender: FDA-Public Use
  Company Number: None

PATIENT
  Sex: Female
  Weight: 158.759 kg

DRUGS (2)
  1. DICLOFENAC 75 MG [Suspect]
     Indication: OSTEOARTHRITIS
     Dosage: 75 MG TID PO
     Route: 048
     Dates: start: 20031003
  2. MISOPROSTOL [Suspect]
     Dosage: 200 MG TID PO
     Route: 048
     Dates: start: 20031003

REACTIONS (4)
  - ABDOMINAL PAIN UPPER [None]
  - FAECES DISCOLOURED [None]
  - FLATULENCE [None]
  - PHARMACEUTICAL PRODUCT COMPLAINT [None]
